APPROVED DRUG PRODUCT: EVEROLIMUS
Active Ingredient: EVEROLIMUS
Strength: 0.75MG
Dosage Form/Route: TABLET;ORAL
Application: A206133 | Product #003 | TE Code: AB
Applicant: HIKMA PHARMACEUTICALS USA INC
Approved: Apr 12, 2018 | RLD: No | RS: No | Type: RX